FAERS Safety Report 20600056 (Version 9)
Quarter: 2025Q2

REPORT INFORMATION
  Report Type: Spontaneous
  Country: AU (occurrence: AU)
  Receive Date: 20220316
  Receipt Date: 20250531
  Transmission Date: 20250716
  Serious: Yes (Other)
  Sender: CELLTRION
  Company Number: AU-CELLTRION INC.-2020AU029648

PATIENT

DRUGS (11)
  1. INFLECTRA [Suspect]
     Active Substance: INFLIXIMAB-DYYB
     Indication: Behcet^s syndrome
     Route: 042
  2. INFLECTRA [Suspect]
     Active Substance: INFLIXIMAB-DYYB
     Route: 042
  3. INFLECTRA [Suspect]
     Active Substance: INFLIXIMAB-DYYB
     Route: 042
  4. INFLECTRA [Suspect]
     Active Substance: INFLIXIMAB-DYYB
     Route: 042
  5. INFLECTRA [Suspect]
     Active Substance: INFLIXIMAB-DYYB
  6. AZATHIOPRINE [Concomitant]
     Active Substance: AZATHIOPRINE
  7. AZATHIOPRINE [Concomitant]
     Active Substance: AZATHIOPRINE
  8. PREDNISOLONE [Concomitant]
     Active Substance: PREDNISOLONE
  9. PREDNISOLONE [Concomitant]
     Active Substance: PREDNISOLONE
  10. COLCHICINE [Concomitant]
     Active Substance: COLCHICINE
  11. COLCHICINE [Concomitant]
     Active Substance: COLCHICINE

REACTIONS (3)
  - Behcet^s syndrome [Unknown]
  - Drug effective for unapproved indication [Unknown]
  - Off label use [Unknown]
